FAERS Safety Report 15250040 (Version 1)
Quarter: 2018Q3

REPORT INFORMATION
  Report Type: Spontaneous
  Country: US (occurrence: US)
  Receive Date: 20180716
  Receipt Date: 20180716
  Transmission Date: 20181010
  Serious: Yes (Other)
  Sender: FDA-Public Use
  Company Number: None

PATIENT
  Age: 62 Year
  Sex: Female
  Weight: 72 kg

DRUGS (6)
  1. VITAMIN C [Concomitant]
     Active Substance: ASCORBIC ACID
  2. DONATEL [Concomitant]
  3. VALSARTAN. [Suspect]
     Active Substance: VALSARTAN
     Indication: HYPERTENSION
     Dosage: ?          QUANTITY:90 TABLET(S);?
     Route: 048
     Dates: start: 20180528, end: 20180716
  4. ENZYMES [Concomitant]
  5. TOPORAL XL [Concomitant]
  6. CHLORAZEPATE [Concomitant]
     Active Substance: CLORAZEPATE DIPOTASSIUM

REACTIONS (2)
  - Diarrhoea [None]
  - Product use issue [None]

NARRATIVE: CASE EVENT DATE: 20180716
